FAERS Safety Report 4478802-5 (Version None)
Quarter: 2004Q3

REPORT INFORMATION
  Report Type: 
  Country: None (occurrence: None)
  Receive Date: 20040923
  Receipt Date: 20040721
  Transmission Date: 20050211
  Serious: No
  Sender: FDA-Public Use
  Company Number: USA040773246

PATIENT
  Age: 67 Year
  Sex: Female
  Weight: 68 kg

DRUGS (6)
  1. FORTEO [Suspect]
     Indication: OSTEOPOROSIS
     Dosage: 20 UG/1 DAY
     Dates: start: 20040720
  2. FUROSEMIDE [Concomitant]
  3. MIACALCIN [Concomitant]
  4. VITAMIN B-12 [Concomitant]
  5. MAGNESIUM [Concomitant]
  6. POTASSIUM [Concomitant]

REACTIONS (5)
  - ARTHRALGIA [None]
  - BONE PAIN [None]
  - MYALGIA [None]
  - NAUSEA [None]
  - PAIN [None]
